FAERS Safety Report 12666486 (Version 4)
Quarter: 2018Q2

REPORT INFORMATION
  Report Type: Spontaneous
  Country: US (occurrence: US)
  Receive Date: 20160819
  Receipt Date: 20180518
  Transmission Date: 20180711
  Serious: Yes (Other)
  Sender: FDA-Public Use
  Company Number: US-ASTRAZENECA-2016SE50292

PATIENT
  Age: 71 Year
  Sex: Female
  Weight: 108.9 kg

DRUGS (14)
  1. OMEPRAZOLE. [Suspect]
     Active Substance: OMEPRAZOLE
     Indication: THROAT CLEARING
     Route: 048
     Dates: start: 20160127
  2. OMEPRAZOLE. [Suspect]
     Active Substance: OMEPRAZOLE
     Indication: PHARYNGITIS
     Route: 048
     Dates: start: 20160427
  3. SYMBICORT [Suspect]
     Active Substance: BUDESONIDE\FORMOTEROL FUMARATE DIHYDRATE
     Indication: CHRONIC OBSTRUCTIVE PULMONARY DISEASE
     Dosage: 160/4.5 MICROGRAMS, 2 PUFFS TWO TIMES A DAY
     Route: 055
     Dates: start: 2014
  4. OMEPRAZOLE. [Suspect]
     Active Substance: OMEPRAZOLE
     Indication: DYSPHONIA
     Route: 048
     Dates: start: 20160427
  5. ZOPINEX [Concomitant]
     Indication: CHRONIC OBSTRUCTIVE PULMONARY DISEASE
     Dosage: THREE TIMES A DAY
     Route: 055
     Dates: start: 2009
  6. OMEPRAZOLE. [Suspect]
     Active Substance: OMEPRAZOLE
     Indication: PHARYNGITIS
     Route: 048
     Dates: start: 20160127
  7. DOXEPIN [Concomitant]
     Active Substance: DOXEPIN
     Indication: DEPRESSION
     Route: 048
     Dates: start: 1991
  8. PULMICORT FLEXHALER [Suspect]
     Active Substance: BUDESONIDE
     Indication: CHRONIC OBSTRUCTIVE PULMONARY DISEASE
     Route: 055
     Dates: end: 2014
  9. FLUTICASONE. [Concomitant]
     Active Substance: FLUTICASONE
     Dosage: 50 MCG TWO SPRAYS EACH NOSE
     Route: 045
     Dates: end: 2016
  10. OMEPRAZOLE. [Suspect]
     Active Substance: OMEPRAZOLE
     Indication: DYSPHONIA
     Route: 048
     Dates: start: 20160127
  11. RANITIDINE. [Concomitant]
     Active Substance: RANITIDINE
     Indication: GASTROINTESTINAL DISORDER
  12. SYMBICORT [Suspect]
     Active Substance: BUDESONIDE\FORMOTEROL FUMARATE DIHYDRATE
     Indication: CHRONIC OBSTRUCTIVE PULMONARY DISEASE
     Dosage: 160-5.6 TWO PUFFS TAKES TWICE A DAY
     Route: 055
  13. OMEPRAZOLE. [Suspect]
     Active Substance: OMEPRAZOLE
     Indication: THROAT CLEARING
     Route: 048
     Dates: start: 20160427
  14. SPIRIVA [Concomitant]
     Active Substance: TIOTROPIUM BROMIDE MONOHYDRATE
     Indication: CHRONIC OBSTRUCTIVE PULMONARY DISEASE
     Route: 055
     Dates: start: 2009

REACTIONS (33)
  - Vulvovaginal pruritus [Unknown]
  - Fall [Unknown]
  - Weight increased [Not Recovered/Not Resolved]
  - Catarrh [Not Recovered/Not Resolved]
  - Loose tooth [Unknown]
  - Road traffic accident [Unknown]
  - Nausea [Unknown]
  - Drug ineffective [Unknown]
  - Memory impairment [Not Recovered/Not Resolved]
  - Off label use [Unknown]
  - Dyspnoea [Unknown]
  - Tooth loss [Unknown]
  - Pruritus generalised [Unknown]
  - Body height decreased [Unknown]
  - Product use in unapproved indication [Unknown]
  - Stomatitis [Not Recovered/Not Resolved]
  - Sleep apnoea syndrome [Unknown]
  - Gait inability [Unknown]
  - Dysgeusia [Unknown]
  - Spinal fracture [Unknown]
  - Abdominal discomfort [Unknown]
  - Hypophagia [Unknown]
  - Epistaxis [Unknown]
  - Joint swelling [Unknown]
  - Limb injury [Unknown]
  - Dry skin [Unknown]
  - Dysphonia [Unknown]
  - Neuropathy peripheral [Unknown]
  - Dry mouth [Not Recovered/Not Resolved]
  - Toothache [Unknown]
  - Eye infection [Unknown]
  - Dysphonia [Not Recovered/Not Resolved]
  - Pruritus [Unknown]

NARRATIVE: CASE EVENT DATE: 2014
